FAERS Safety Report 24300746 (Version 1)
Quarter: 2024Q3

REPORT INFORMATION
  Report Type: Spontaneous
  Country: GB (occurrence: GB)
  Receive Date: 20240910
  Receipt Date: 20240910
  Transmission Date: 20241017
  Serious: Yes (Hospitalization, Other)
  Sender: DEXCEL
  Company Number: None

PATIENT
  Age: 81 Year
  Sex: Female

DRUGS (13)
  1. BisoprololBISOPROLOL (Specific Substance SUB927) [Concomitant]
     Dosage: BISOPROLOL 5 MG TABLETS 1 OM
  2. IrbesartanIRBESARTAN (Specific Substance SUB7381) [Concomitant]
     Dosage: IRBESARTAN 300 MG TABLETS 1 OM
  3. MemantineMEMANTINE (Specific Substance SUB7984) [Concomitant]
     Dosage: MEMANTINE 20 MG TABLETS 1 OM
  4. OMEPRAZOLE [Interacting]
     Active Substance: OMEPRAZOLE
     Dosage: OMEPRAZOLE 20 MG GASTRO-RESISTANT CAPSULES 1 BD AM/TEA
  5. SalbutamolSALBUTAMOL (Specific Substance SUB356) [Concomitant]
  6. LorazepamLORAZEPAM (Specific Substance SUB7770) [Concomitant]
     Dosage: LORAZEPAM 1MG TABLETS HALF TABLET BD AM/TEA
  7. AMISULPRIDE [Interacting]
     Active Substance: AMISULPRIDE
     Dosage: AMISULPRIDE 50 MG TABLETS 1 ON
  8. SERTRALINE [Interacting]
     Active Substance: SERTRALINE HYDROCHLORIDE
     Dosage: SERTRALINE 100 MG TABLETS 1 OM
  9. SERTRALINE [Interacting]
     Active Substance: SERTRALINE HYDROCHLORIDE
     Dosage: SERTRALINE 50 MG TABLETS 1 OM
  10. VentolinVENTOLIN (Specific MP Group PGR5421477) [Concomitant]
     Dosage: VENTOLIN 200 MICROGRAMS / DOSE ACCUHALER 1 PUFF PRN
  11. ParacetamolPARACETAMOL (Specific Substance SUB155) [Concomitant]
     Dosage: PARACETAMOL 500MG TABLETS 1-2 QDS PRN
  12. INDAPAMIDE [Interacting]
     Active Substance: INDAPAMIDE
     Dosage: INDAPAMIDE 2.5 MG TABLETS 1 OM
  13. AMLODIPINE [Concomitant]
     Active Substance: AMLODIPINE BESYLATE
     Dosage: AMLODIPINE 10 MG TABLETS 1 OM

REACTIONS (6)
  - Inappropriate antidiuretic hormone secretion [Recovered/Resolved]
  - Lethargy [Unknown]
  - Muscular weakness [Unknown]
  - Mobility decreased [Unknown]
  - Hyponatraemia [Recovered/Resolved]
  - Drug interaction [Unknown]
